FAERS Safety Report 15120717 (Version 1)
Quarter: 2018Q3

REPORT INFORMATION
  Report Type: Spontaneous
  Country: US (occurrence: US)
  Receive Date: 20180613
  Receipt Date: 20180613
  Transmission Date: 20181010
  Serious: No
  Sender: FDA-Public Use
  Company Number: None

PATIENT
  Age: 37 Year
  Sex: Female
  Weight: 57.15 kg

DRUGS (4)
  1. NP THYROID [Concomitant]
     Active Substance: LEVOTHYROXINE\LIOTHYRONINE
  2. VITAMIN B12 [Concomitant]
     Active Substance: CYANOCOBALAMIN
  3. MULTIVITAMIN [Concomitant]
     Active Substance: VITAMINS
  4. MIRENA [Suspect]
     Active Substance: LEVONORGESTREL
     Dates: start: 20170420

REACTIONS (14)
  - Anxiety [None]
  - Irritability [None]
  - Depression [None]
  - Fatigue [None]
  - Migraine [None]
  - Eye pain [None]
  - Horner^s syndrome [None]
  - Bradyphrenia [None]
  - Mood swings [None]
  - Amnesia [None]
  - Facial paralysis [None]
  - Confusional state [None]
  - Premenstrual syndrome [None]
  - Hypothyroidism [None]

NARRATIVE: CASE EVENT DATE: 20180613
